FAERS Safety Report 5893824-5 (Version None)
Quarter: 2008Q3

REPORT INFORMATION
  Report Type: 
  Country: None (occurrence: None)
  Receive Date: 20080923
  Receipt Date: 20071108
  Transmission Date: 20090109
  Serious: No
  Sender: FDA-Public Use
  Company Number: US-ASTRAZENECA-2007UW24996

PATIENT
  Age: 478 Month
  Sex: Male
  Weight: 118.2 kg

DRUGS (3)
  1. SEROQUEL [Suspect]
     Indication: BIPOLAR I DISORDER
     Dosage: 100-200 MG
     Route: 048
     Dates: start: 20030101
  2. SEROQUEL [Suspect]
     Indication: INSOMNIA
     Dosage: 100-200 MG
     Route: 048
     Dates: start: 20030101
  3. SEROQUEL [Suspect]
     Indication: HALLUCINATION
     Dosage: 100-200 MG
     Route: 048
     Dates: start: 20030101

REACTIONS (10)
  - BACK PAIN [None]
  - CHEST PAIN [None]
  - DIZZINESS [None]
  - DYSPNOEA [None]
  - ERECTILE DYSFUNCTION [None]
  - HYPERLIPIDAEMIA [None]
  - HYPERTENSION [None]
  - MUSCULOSKELETAL PAIN [None]
  - TYPE 2 DIABETES MELLITUS [None]
  - WEIGHT INCREASED [None]
